FAERS Safety Report 7032911-5 (Version None)
Quarter: 2010Q4

REPORT INFORMATION
  Report Type: 
  Country: None (occurrence: None)
  Receive Date: 20101007
  Receipt Date: 20101001
  Transmission Date: 20110411
  Serious: Yes (Other)
  Sender: FDA-Public Use
  Company Number: NO-ROCHE-730178

PATIENT
  Sex: Female

DRUGS (5)
  1. ROACTEMRA [Suspect]
     Route: 042
     Dates: start: 20100403, end: 20100901
  2. PREDNISOLONE [Concomitant]
     Indication: RHEUMATOID ARTHRITIS
     Dosage: REPORTED AS:  PREDNISOLSON
     Route: 048
  3. LIPITOR [Concomitant]
     Dosage: FREQUENCY:  VESP
     Route: 048
  4. BONIVA [Concomitant]
     Route: 048
  5. ORUDIS GEL [Concomitant]
     Dosage: FREQUENCY: AS NEEDED.

REACTIONS (5)
  - DIARRHOEA [None]
  - INFUSION RELATED REACTION [None]
  - MALAISE [None]
  - MYALGIA [None]
  - NAUSEA [None]
